FAERS Safety Report 4804389-0 (Version None)
Quarter: 2005Q4

REPORT INFORMATION
  Report Type: 
  Country: None (occurrence: None)
  Receive Date: 20051018
  Receipt Date: 20051018
  Transmission Date: 20060501
  Serious: Yes (Hospitalization)
  Sender: FDA-Public Use
  Company Number: None

PATIENT
  Sex: Male
  Weight: 87.7 kg

DRUGS (1)
  1. TEMOZOMIDE [Suspect]
     Indication: ASTROCYTOMA
     Dosage: SEE IMAGE
     Route: 048
     Dates: start: 20051011

REACTIONS (2)
  - FALL [None]
  - FOOT FRACTURE [None]
